FAERS Safety Report 10633481 (Version 3)
Quarter: 2015Q1

REPORT INFORMATION
  Report Type: Spontaneous
  Country: US (occurrence: US)
  Receive Date: 20141205
  Receipt Date: 20150114
  Transmission Date: 20150720
  Serious: Yes (Hospitalization, Disabling, Other)
  Sender: FDA-Public Use
  Company Number: US-009507513-1204USA03764

PATIENT
  Sex: Male
  Weight: 76.64 kg

DRUGS (1)
  1. PROPECIA [Suspect]
     Active Substance: FINASTERIDE
     Indication: ANDROGENETIC ALOPECIA
     Dosage: 1 MG, QD
     Route: 048
     Dates: end: 20091123

REACTIONS (51)
  - Depression [Not Recovered/Not Resolved]
  - Ear discomfort [Unknown]
  - Cardiac flutter [Unknown]
  - Dry eye [Unknown]
  - Urinary tract disorder [Unknown]
  - Facial bones fracture [Unknown]
  - Abdominal pain upper [Unknown]
  - Drug hypersensitivity [Unknown]
  - Testicular pain [Unknown]
  - Abdominal pain lower [Unknown]
  - Dyspepsia [Unknown]
  - Adverse drug reaction [Unknown]
  - Cognitive disorder [Not Recovered/Not Resolved]
  - Ejaculation failure [Not Recovered/Not Resolved]
  - Sexual dysfunction [Not Recovered/Not Resolved]
  - Sleep apnoea syndrome [Unknown]
  - Decreased appetite [Unknown]
  - Dehydration [Unknown]
  - Abdominal distension [Unknown]
  - Depression [Unknown]
  - Deformity [Unknown]
  - Sexually transmitted disease [Unknown]
  - Prostatitis [Unknown]
  - Abnormal loss of weight [Unknown]
  - Haematuria [Unknown]
  - Nasal septum deviation [Unknown]
  - Gastrooesophageal reflux disease [Unknown]
  - Tinnitus [Unknown]
  - Muscle atrophy [Unknown]
  - Poor quality sleep [Unknown]
  - Dizziness [Unknown]
  - Muscle tightness [Unknown]
  - Testicular torsion [Unknown]
  - Libido decreased [Not Recovered/Not Resolved]
  - Unevaluable event [Unknown]
  - Pollakiuria [Unknown]
  - Fatigue [Unknown]
  - Social problem [Unknown]
  - Testicular mass [Unknown]
  - Upper respiratory tract infection [Unknown]
  - Anxiety [Not Recovered/Not Resolved]
  - Ejaculation disorder [Not Recovered/Not Resolved]
  - Pain [Unknown]
  - Neck pain [Unknown]
  - Nasal septal operation [Unknown]
  - Suicidal ideation [Unknown]
  - Erectile dysfunction [Not Recovered/Not Resolved]
  - Muscle twitching [Unknown]
  - Palpitations [Unknown]
  - Headache [Unknown]
  - Thirst [Unknown]

NARRATIVE: CASE EVENT DATE: 200406
